FAERS Safety Report 11558384 (Version 1)
Quarter: 2015Q3

REPORT INFORMATION
  Report Type: Spontaneous
  Country: US (occurrence: US)
  Receive Date: 20150928
  Receipt Date: 20150928
  Transmission Date: 20151125
  Serious: No
  Sender: FDA-Public Use
  Company Number: US-PFIZER INC-2015319986

PATIENT
  Age: 64 Year
  Sex: Female
  Weight: 64 kg

DRUGS (2)
  1. LYRICA [Suspect]
     Active Substance: PREGABALIN
     Indication: FIBROMYALGIA
     Dosage: 100 MG, 2X/DAY
     Route: 048
     Dates: end: 20150919
  2. LYRICA [Suspect]
     Active Substance: PREGABALIN
     Indication: SPINAL CORD INJURY

REACTIONS (2)
  - Neck pain [Not Recovered/Not Resolved]
  - Pain [Not Recovered/Not Resolved]
